FAERS Safety Report 8478266-0 (Version None)
Quarter: 2012Q2

REPORT INFORMATION
  Report Type: 
  Country: None (occurrence: None)
  Receive Date: 20120629
  Receipt Date: 20120620
  Transmission Date: 20120825
  Serious: Yes (Disabling)
  Sender: FDA-Public Use
  Company Number: US-B.I. PHARMACEUTICALS,INC./RIDGEFIELD-2012-BP-14186BP

PATIENT
  Sex: Female
  Weight: 118.84 kg

DRUGS (11)
  1. GABAPENTIN [Concomitant]
     Indication: NEURALGIA
  2. MOBIC [Suspect]
     Indication: FIBROMYALGIA
     Dosage: 7.5 MG
  3. CELEBREX [Suspect]
     Indication: ROAD TRAFFIC ACCIDENT
  4. VITAMIN B-12 [Concomitant]
     Indication: THYROID DISORDER
  5. CELEBREX [Suspect]
     Indication: PAIN
  6. CELEBREX [Suspect]
     Indication: ARTHRITIS
  7. SYNTHROID [Concomitant]
     Indication: THYROID DISORDER
     Dosage: 100 MCG
     Route: 048
  8. MOBIC [Suspect]
     Indication: ARTHRITIS
     Dates: end: 20100101
  9. CELEBREX [Suspect]
     Indication: FIBROMYALGIA
     Route: 048
     Dates: start: 20100101
  10. SKELAXIN [Concomitant]
     Indication: NEURALGIA
     Route: 048
  11. BUSPAR [Concomitant]
     Indication: ANXIETY

REACTIONS (11)
  - OEDEMA PERIPHERAL [None]
  - MUSCLE INJURY [None]
  - WEIGHT INCREASED [None]
  - PAIN [None]
  - ROAD TRAFFIC ACCIDENT [None]
  - MUSCLE TIGHTNESS [None]
  - DYSSTASIA [None]
  - URINARY INCONTINENCE [None]
  - MUSCLE SPASMS [None]
  - NERVE INJURY [None]
  - VISION BLURRED [None]
